FAERS Safety Report 6583021-2 (Version None)
Quarter: 2010Q1

REPORT INFORMATION
  Report Type: 
  Country: None (occurrence: None)
  Receive Date: 20100216
  Receipt Date: 20100204
  Transmission Date: 20100710
  Serious: Yes (Hospitalization)
  Sender: FDA-Public Use
  Company Number: US-ROCHE-664359

PATIENT
  Sex: Female
  Weight: 50.5 kg

DRUGS (23)
  1. TOCILIZUMAB [Suspect]
     Indication: RHEUMATOID ARTHRITIS
     Dosage: LAST DOSE PRIOR TO SAE 22 SEP 2009
     Route: 042
     Dates: start: 20070109, end: 20070919
  2. TOCILIZUMAB [Suspect]
     Dosage: FREQUENCY AS PER PROTOCOL, REPORTED AS Q4S.
     Route: 042
     Dates: start: 20071022
  3. CALCIUM/VITAMIN D [Concomitant]
     Dates: start: 20090722
  4. ASCORBIC ACID [Concomitant]
     Dates: start: 20090722
  5. ASCORBIC ACID [Concomitant]
  6. OMEPRAZOLE [Concomitant]
     Dosage: START DATE OF THE DRUG IS ILLEGIBLE
  7. METHOTREXATE [Concomitant]
     Dosage: REPORTED DAILY DOSE IS 15 MG QS. THE START DATE OF THE DRUG IS ILLEGIBLE.
     Route: 048
     Dates: start: 20070827
  8. FOLIC ACID [Concomitant]
     Route: 048
     Dates: start: 20070812
  9. ACETAMINOPHEN [Concomitant]
     Dosage: TDD IS REPORTED AS PRN. STARTED PRIOR TO START OF THE STUDY
     Route: 048
  10. TRAMADOL HCL [Concomitant]
     Dosage: TDD IS REPORTED AS PRN. STARTED PRIOR TO START OF THE STUDY
     Route: 048
  11. TRAMADOL HCL [Concomitant]
     Route: 048
  12. MULTIVITAMIN NOS [Concomitant]
     Route: 048
     Dates: start: 20060921
  13. FOSAMAX [Concomitant]
  14. VOLTAREN [Concomitant]
     Dates: start: 20040811
  15. FAMOTIDINE [Concomitant]
     Dates: start: 20070928, end: 20070928
  16. METOCLOPRAMIDE [Concomitant]
     Dates: start: 20070928, end: 20070928
  17. ONDANSETRON [Concomitant]
     Dates: start: 20070928, end: 20070928
  18. 1 CONCOMITANT DRUG [Concomitant]
     Dates: start: 20071002, end: 20071008
  19. VANCOMYCIN [Concomitant]
     Dates: start: 20070928, end: 20071002
  20. MORPHINE [Concomitant]
     Dates: start: 20070928
  21. 1 CONCOMITANT DRUG [Concomitant]
     Dates: start: 20040811
  22. ROYAL JELLY [Concomitant]
     Dosage: REPORTED DRUG: ROAY BEE JELLY, TOTAL DAILY DOSE: 1 CAP
     Dates: start: 20090201
  23. PREMPRO [Concomitant]
     Dosage: REPORTED TOTAL DAILY DOSE: 1 TAB
     Dates: start: 20080915

REACTIONS (1)
  - SYNCOPE [None]
